FAERS Safety Report 22134054 (Version 1)
Quarter: 2023Q1

REPORT INFORMATION
  Report Type: Spontaneous
  Country: AU (occurrence: AU)
  Receive Date: 20230324
  Receipt Date: 20230324
  Transmission Date: 20230418
  Serious: Yes (Other)
  Sender: FDA-Public Use
  Company Number: AU-BoehringerIngelheim-2023-BI-222940

PATIENT
  Sex: Male

DRUGS (14)
  1. GLYXAMBI [Suspect]
     Active Substance: EMPAGLIFLOZIN\LINAGLIPTIN
     Indication: Product used for unknown indication
  2. JARDIANCE [Suspect]
     Active Substance: EMPAGLIFLOZIN
     Indication: Product used for unknown indication
  3. bicor [Concomitant]
     Indication: Product used for unknown indication
  4. DOCUSATE SODIUM\SENNOSIDES A AND B [Concomitant]
     Active Substance: DOCUSATE SODIUM\SENNOSIDES A AND B
     Indication: Product used for unknown indication
     Dosage: 2 TABLETS OF 50MG DOCUSATE SODIUM;11.27MG SENNOSIDES IN THE EVENING
  5. CREON [Concomitant]
     Active Substance: PANCRELIPASE AMYLASE\PANCRELIPASE LIPASE\PANCRELIPASE PROTEASE
     Indication: Product used for unknown indication
     Dosage: 25000 BP UNITS CAPSULE AS DIRECTED
  6. CRESTOR [Concomitant]
     Active Substance: ROSUVASTATIN CALCIUM
     Indication: Product used for unknown indication
  7. EXFORGE [Concomitant]
     Active Substance: AMLODIPINE BESYLATE\VALSARTAN
     Indication: Product used for unknown indication
     Dosage: 10MG/320MG STRENGTH, ONE TABLET IN THE EVENING
  8. EZETIMIBE [Concomitant]
     Active Substance: EZETIMIBE
     Indication: Product used for unknown indication
  9. LIPIDIL [Concomitant]
     Active Substance: FENOFIBRATE
     Indication: Product used for unknown indication
  10. LOSEC [Concomitant]
     Active Substance: OMEPRAZOLE
     Indication: Product used for unknown indication
  11. METFORMIN [Concomitant]
     Active Substance: METFORMIN HYDROCHLORIDE
     Indication: Product used for unknown indication
     Dosage: 1 TABLET IN THE EVENING
  12. OZEMPIC [Concomitant]
     Active Substance: SEMAGLUTIDE
     Indication: Product used for unknown indication
     Dosage: 1MG/DOSE PEN DEVICE. 0.75 SYRINGE.
  13. RYZODEG 70/30 [Concomitant]
     Active Substance: INSULIN ASPART\INSULIN DEGLUDEC
     Indication: Product used for unknown indication
     Dosage: 70/30 PEN DEVICE. 50 IN THE MORNING, AND 70 AT NIGHT.
  14. symbicort rapihaler 100/3 [Concomitant]
     Indication: Product used for unknown indication
     Dosage: 100MCG/3MCG TWICE A DAY

REACTIONS (9)
  - Pancreatitis acute [Unknown]
  - Lipids increased [Unknown]
  - Blood sodium decreased [Unknown]
  - Electrolyte imbalance [Not Recovered/Not Resolved]
  - Lipase increased [Not Recovered/Not Resolved]
  - Lethargy [Not Recovered/Not Resolved]
  - Renal impairment [Unknown]
  - Blood potassium increased [Unknown]
  - Diabetes mellitus inadequate control [Unknown]
